FAERS Safety Report 16367938 (Version 1)
Quarter: 2019Q2

REPORT INFORMATION
  Report Type: Spontaneous
  Country: CN (occurrence: CN)
  Receive Date: 20190529
  Receipt Date: 20190529
  Transmission Date: 20190711
  Serious: Yes (Other)
  Sender: FDA-Public Use
  Company Number: CN-PFIZER INC-2019223285

PATIENT
  Age: 62 Year
  Sex: Female
  Weight: 59 kg

DRUGS (8)
  1. AMLODIPINE BESYLATE. [Concomitant]
     Active Substance: AMLODIPINE BESYLATE
     Indication: HYPERTENSION
     Dosage: 5 MG, 1X/DAY
     Route: 048
     Dates: start: 20190420, end: 20190515
  2. CELECOXIB. [Suspect]
     Active Substance: CELECOXIB
     Indication: ANALGESIC THERAPY
     Dosage: 200 MG, 1X/DAY
     Route: 048
     Dates: start: 20190428, end: 20190514
  3. KAI FEN [Suspect]
     Active Substance: FLURBIPROFEN AXETIL
     Indication: ANALGESIC THERAPY
     Dosage: 10 ML, 2X/DAY
     Route: 041
     Dates: start: 20190425, end: 20190430
  4. CEFUROXIME SODIUM. [Suspect]
     Active Substance: CEFUROXIME SODIUM
     Indication: OSTEOARTHRITIS
     Dosage: 3 G, 2X/DAY
     Route: 041
     Dates: start: 20190425, end: 20190430
  5. MAI JIN LI [Concomitant]
     Indication: OSTEOARTHRITIS
     Dosage: 100 MG, 1X/DAY
     Route: 041
     Dates: start: 20190425, end: 20190510
  6. COMPOUND AMINO ACID (18AA) [ALANINE;ALLYSINE;ARGININE;ASPARTIC ACID;CY [Concomitant]
     Indication: MALNUTRITION
     Dosage: 250 ML, 1X/DAY
     Route: 041
     Dates: start: 20190426, end: 20190510
  7. ASPIRIN BAYER [Suspect]
     Active Substance: ASPIRIN
     Indication: THROMBOSIS PROPHYLAXIS
     Dosage: 100 MG, 1X/DAY
     Route: 048
     Dates: start: 20190426, end: 20190510
  8. TRAMADOL HYDROCHLORIDE. [Concomitant]
     Active Substance: TRAMADOL HYDROCHLORIDE
     Indication: ANALGESIC THERAPY
     Dosage: 100 MG, 2X/DAY
     Route: 048
     Dates: start: 20190429, end: 20190513

REACTIONS (1)
  - Liver injury [Recovering/Resolving]

NARRATIVE: CASE EVENT DATE: 20190430
